FAERS Safety Report 18378653 (Version 3)
Quarter: 2020Q4

REPORT INFORMATION
  Report Type: Spontaneous
  Country: DE (occurrence: DE)
  Receive Date: 20201013
  Receipt Date: 20201028
  Transmission Date: 20210114
  Serious: Yes (Hospitalization, Other)
  Sender: FDA-Public Use
  Company Number: DE-ROCHE-2690885

PATIENT
  Sex: Female
  Weight: 59 kg

DRUGS (1)
  1. ROACTEMRA [Suspect]
     Active Substance: TOCILIZUMAB
     Indication: GIANT CELL ARTERITIS
     Route: 058
     Dates: start: 201805

REACTIONS (7)
  - Urinary tract infection [Unknown]
  - Erysipelas [Unknown]
  - Herpes zoster [Unknown]
  - Myocarditis [Not Recovered/Not Resolved]
  - Giant cell arteritis [Unknown]
  - Herpes virus infection [Unknown]
  - Cardiac failure [Unknown]

NARRATIVE: CASE EVENT DATE: 2019
